FAERS Safety Report 4711483-1 (Version None)
Quarter: 2005Q3

REPORT INFORMATION
  Report Type: 
  Country: None (occurrence: None)
  Receive Date: 20050711
  Receipt Date: 20050627
  Transmission Date: 20060218
  Serious: Yes (Other)
  Sender: FDA-Public Use
  Company Number: 8010382

PATIENT
  Age: 20 Year
  Sex: Female
  Weight: 56.8 kg

DRUGS (2)
  1. KEPPRA [Suspect]
     Indication: CONVULSION
     Dosage: 1250 MG 2/D PO
     Route: 048
     Dates: start: 20010501, end: 20041101
  2. KEPPRA [Suspect]
     Indication: CONVULSION
     Dosage: 5000 MG PO
     Route: 048
     Dates: start: 20041102

REACTIONS (8)
  - ABORTION SPONTANEOUS [None]
  - DRUG DOSE OMISSION [None]
  - DRUG EXPOSURE DURING PREGNANCY [None]
  - ECONOMIC PROBLEM [None]
  - EMOTIONAL DISORDER [None]
  - GRAND MAL CONVULSION [None]
  - IMPAIRED WORK ABILITY [None]
  - PREGNANCY [None]
